FAERS Safety Report 17884256 (Version 1)
Quarter: 2020Q2

REPORT INFORMATION
  Report Type: Spontaneous
  Country: CA (occurrence: CA)
  Receive Date: 20200611
  Receipt Date: 20200611
  Transmission Date: 20200714
  Serious: Yes (Other)
  Sender: FDA-Public Use
  Company Number: CA-PFIZER INC-2020122356

PATIENT
  Age: 66 Year
  Sex: Female

DRUGS (7)
  1. LEUCOVORIN [FOLINIC ACID] [Concomitant]
     Active Substance: LEUCOVORIN
     Dosage: UNK
     Route: 048
     Dates: start: 2019
  2. TYLENOL [Concomitant]
     Active Substance: ACETAMINOPHEN
     Dosage: UNK
  3. EFFEXOR [Concomitant]
     Active Substance: VENLAFAXINE HYDROCHLORIDE
     Dosage: UNK
  4. FOLIC ACID. [Concomitant]
     Active Substance: FOLIC ACID
     Dosage: 5 MG
     Route: 048
  5. METHOTREXATE. [Concomitant]
     Active Substance: METHOTREXATE
     Indication: RHEUMATOID ARTHRITIS
     Dosage: 20 MG, WEEKLY
     Route: 058
  6. XELJANZ XR [Suspect]
     Active Substance: TOFACITINIB CITRATE
     Indication: RHEUMATOID ARTHRITIS
     Dosage: 11 MG, 1X/DAY
     Route: 048
  7. PREDNISONE. [Concomitant]
     Active Substance: PREDNISONE
     Dosage: 20 MG, 1X/DAY
     Route: 048

REACTIONS (20)
  - Somnolence [Unknown]
  - Headache [Unknown]
  - Fear [Unknown]
  - Loss of personal independence in daily activities [Unknown]
  - Memory impairment [Unknown]
  - Pollakiuria [Unknown]
  - Pain [Recovered/Resolved]
  - Concussion [Unknown]
  - Insomnia [Unknown]
  - Nausea [Unknown]
  - Loss of consciousness [Unknown]
  - Fall [Unknown]
  - Arthralgia [Unknown]
  - Contusion [Unknown]
  - Panic attack [Unknown]
  - Speech disorder [Unknown]
  - Balance disorder [Unknown]
  - Mental disorder [Unknown]
  - Tremor [Unknown]
  - Aphasia [Unknown]
